FAERS Safety Report 20546829 (Version 1)
Quarter: 2022Q1

REPORT INFORMATION
  Report Type: Spontaneous
  Country: CN (occurrence: CN)
  Receive Date: 20220303
  Receipt Date: 20220303
  Transmission Date: 20220423
  Serious: Yes (Other)
  Sender: FDA-Public Use
  Company Number: CN-PFIZER INC-202200299935

PATIENT
  Age: 57 Year
  Sex: Male

DRUGS (2)
  1. TIGECYCLINE [Suspect]
     Active Substance: TIGECYCLINE
     Indication: Abdominal infection
     Dosage: 50 MG, Q12H (EVERY 12 HOURS)
     Route: 041
     Dates: start: 20220208, end: 20220215
  2. SODIUM CHLORIDE [Concomitant]
     Active Substance: SODIUM CHLORIDE
     Indication: Vehicle solution use
     Dosage: 150 ML, Q12H (EVERY 12 HOURS)
     Route: 041
     Dates: start: 20220208, end: 20220215

REACTIONS (4)
  - Blood fibrinogen decreased [Recovering/Resolving]
  - Blood bilirubin increased [Recovering/Resolving]
  - Hypoglycaemia [Recovering/Resolving]
  - Diarrhoea [Recovering/Resolving]

NARRATIVE: CASE EVENT DATE: 20220208
